FAERS Safety Report 18306952 (Version 1)
Quarter: 2020Q3

REPORT INFORMATION
  Report Type: Spontaneous
  Country: US (occurrence: US)
  Receive Date: 20200924
  Receipt Date: 20200924
  Transmission Date: 20201103
  Serious: No
  Sender: FDA-Public Use
  Company Number: US-GLAXOSMITHKLINE-US2020AMR186143

PATIENT
  Sex: Male
  Weight: 70 kg

DRUGS (4)
  1. FOLIC ACID. [Concomitant]
     Active Substance: FOLIC ACID
     Indication: PRODUCT USED FOR UNKNOWN INDICATION
     Dosage: UNK
  2. NITROGLYCERIN. [Concomitant]
     Active Substance: NITROGLYCERIN
     Indication: CHEST PAIN
     Dosage: UNK
  3. THIAMINE. [Concomitant]
     Active Substance: THIAMINE
     Indication: PRODUCT USED FOR UNKNOWN INDICATION
     Dosage: UNK
  4. NICODERM CQ [Suspect]
     Active Substance: NICOTINE
     Indication: SMOKING CESSATION THERAPY

REACTIONS (5)
  - Adverse drug reaction [Unknown]
  - Therapeutic product effect incomplete [Unknown]
  - Nausea [Unknown]
  - Weight decreased [Unknown]
  - Drug intolerance [Unknown]
